FAERS Safety Report 16290479 (Version 2)
Quarter: 2019Q2

REPORT INFORMATION
  Report Type: Spontaneous
  Country: CZ (occurrence: CZ)
  Receive Date: 20190509
  Receipt Date: 20190517
  Transmission Date: 20190711
  Serious: Yes (Other)
  Sender: FDA-Public Use
  Company Number: CZ-PFIZER INC-2019197775

PATIENT
  Age: 53 Year
  Sex: Female

DRUGS (10)
  1. ORFIRIL [Concomitant]
     Active Substance: VALPROATE SODIUM
     Dosage: THE DOSAGE 1-1-1 (ONE IN THE MORNING, ONE AT NOON, ONE IN THE EVENING); LONG TERM MEDICATION
  2. VESICARE [Concomitant]
     Active Substance: SOLIFENACIN SUCCINATE
     Dosage: 10 MG, 1X/DAY (THE DOSAGE 1-0-0 (ONE IN THE MORNING), LONG-TERM MEDICATION)
  3. EUPHYLLIN CR N [Concomitant]
     Indication: TRACHEOBRONCHITIS
     Dosage: UNK
  4. VIMPAT [Concomitant]
     Active Substance: LACOSAMIDE
     Dosage: 50 MG, 2X/DAY (THE DOSAGE 1-0-1 (ONE IN THE MORNING, ONE IN THE EVENING), LONG-TERM MEDICATION)
  5. OFLOXIN [OFLOXACIN] [Concomitant]
     Indication: TRACHEOBRONCHITIS
     Dosage: UNK
  6. CAVINTON [Concomitant]
     Active Substance: VINPOCETINE
     Dosage: LONG-TERM MEDICATION
  7. ESTROFEM [ESTRADIOL] [Concomitant]
     Active Substance: ESTRADIOL
     Dosage: 1 MG, 1X/DAY (THE DOSAGE 0-1-0 (ONE AT NOON); LONG-TERM MEDICATION)
  8. MEDROL [Concomitant]
     Active Substance: METHYLPREDNISOLONE
     Indication: TRACHEOBRONCHITIS
     Dosage: UNK
  9. DALACIN [Suspect]
     Active Substance: CLINDAMYCIN
     Indication: TRACHEOBRONCHITIS
     Dosage: 300 MG, 3X/DAY (FINISHED THE PACKAGE)
     Route: 048
     Dates: start: 20190329, end: 20190409
  10. BETAHISTIN [BETAHISTINE HYDROCHLORIDE] [Concomitant]
     Dosage: 24 MG, 1X/DAY (DOSAGE 1-0-0 (ONE IN THE MORNING), LONG-TERM MEDICATION)

REACTIONS (7)
  - Oesophageal pain [Recovering/Resolving]
  - Abdominal pain [Unknown]
  - Dysphagia [Recovering/Resolving]
  - Seizure [Recovering/Resolving]
  - Abdominal pain upper [Recovering/Resolving]
  - Oropharyngeal pain [Recovering/Resolving]
  - Vulvovaginal inflammation [Unknown]

NARRATIVE: CASE EVENT DATE: 20190331
